FAERS Safety Report 8928920 (Version 3)
Quarter: 2013Q1

REPORT INFORMATION
  Report Type: Spontaneous
  Country: US (occurrence: US)
  Receive Date: 20121128
  Receipt Date: 20130321
  Transmission Date: 20140127
  Serious: Yes (Hospitalization, Other)
  Sender: FDA-Public Use
  Company Number: US-BRISTOL-MYERS SQUIBB COMPANY-16841710

PATIENT
  Age: 64 Year
  Sex: Female
  Weight: 55.33 kg

DRUGS (6)
  1. ERBITUX [Suspect]
     Indication: TONGUE NEOPLASM MALIGNANT STAGE UNSPECIFIED
     Dosage: 640MG ON JUL2012, 400MG ON 26JUL2012.
     Route: 042
     Dates: start: 201207
  2. ERBITUX [Suspect]
     Indication: OROPHARYNGEAL CANCER
     Dosage: 640MG ON JUL2012, 400MG ON 26JUL2012.
     Route: 042
     Dates: start: 201207
  3. CARBOPLATIN [Suspect]
     Indication: TONGUE NEOPLASM MALIGNANT STAGE UNSPECIFIED
     Dosage: 12,19,24JUL22012.
     Dates: start: 20120712
  4. CARBOPLATIN [Suspect]
     Indication: OROPHARYNGEAL CANCER
     Dosage: 12,19,24JUL22012.
     Dates: start: 20120712
  5. TAXOL [Suspect]
     Indication: OROPHARYNGEAL CANCER
     Dosage: 12,19,24JUL22012.
     Dates: start: 20120712
  6. TAXOL [Suspect]
     Indication: TONGUE NEOPLASM MALIGNANT STAGE UNSPECIFIED
     Dosage: 12,19,24JUL22012.
     Dates: start: 20120712

REACTIONS (10)
  - Pyrexia [Unknown]
  - Cough [Unknown]
  - Rash [Recovered/Resolved]
  - Mucosal inflammation [Unknown]
  - White blood cell count decreased [Unknown]
  - Pneumonitis [Unknown]
  - Anaemia [Unknown]
  - Neutropenia [Unknown]
  - Candida infection [Recovering/Resolving]
  - Dysphagia [Unknown]
